FAERS Safety Report 9514153 (Version 1)
Quarter: 2013Q3

REPORT INFORMATION
  Report Type: Spontaneous
  Country: US (occurrence: US)
  Receive Date: 20130910
  Receipt Date: 20130910
  Transmission Date: 20140515
  Serious: Yes (Other)
  Sender: FDA-Public Use
  Company Number: US-RB-058054-13

PATIENT
  Age: 30 Year
  Sex: Male

DRUGS (4)
  1. SUBOXONE FILM [Suspect]
     Indication: DRUG DEPENDENCE
     Dosage: SUBOXONE FILM; DOSING DETAILS UNKNOWN
     Route: 060
     Dates: start: 201105, end: 201208
  2. SUBOXONE FILM [Suspect]
     Dosage: SUBOXONE FILM; CUTTING FILM
     Route: 060
     Dates: start: 201208
  3. CELEXA [Concomitant]
     Indication: DEPRESSION
     Dosage: DOSING DETAILS UNKNOWN
     Route: 048
  4. GABAPENTIN [Concomitant]
     Indication: ANXIETY
     Dosage: DOSING DETAILS UNKNOWN
     Route: 048
     Dates: end: 201308

REACTIONS (4)
  - Substance abuse [Recovered/Resolved]
  - Wrong technique in drug usage process [Not Recovered/Not Resolved]
  - Hepatitis C [Not Recovered/Not Resolved]
  - Hepatic enzyme increased [Not Recovered/Not Resolved]
